FAERS Safety Report 14203287 (Version 2)
Quarter: 2017Q4

REPORT INFORMATION
  Report Type: Spontaneous
  Country: GB (occurrence: GB)
  Receive Date: 20171120
  Receipt Date: 20171129
  Transmission Date: 20180321
  Serious: Yes (Other)
  Sender: FDA-Public Use
  Company Number: GB-ACCORD-061111

PATIENT
  Age: 29 Year
  Sex: Male

DRUGS (2)
  1. SERTRALINE [Suspect]
     Active Substance: SERTRALINE HYDROCHLORIDE
     Indication: PRODUCT USED FOR UNKNOWN INDICATION
     Dates: start: 201710
  2. CLOZARIL [Suspect]
     Active Substance: CLOZAPINE
     Indication: SCHIZOPHRENIA
     Dosage: THE PATIENT RECEIVED CLOZAPINE 50 MG QD.
     Route: 048
     Dates: start: 20171002, end: 20171031

REACTIONS (3)
  - Tachycardia [Unknown]
  - Schizophrenia [Unknown]
  - Myoclonus [Unknown]

NARRATIVE: CASE EVENT DATE: 201710
